FAERS Safety Report 7565907-5 (Version None)
Quarter: 2011Q2

REPORT INFORMATION
  Report Type: 
  Country: None (occurrence: None)
  Receive Date: 20110623
  Receipt Date: 20110613
  Transmission Date: 20111010
  Serious: Yes (Other)
  Sender: FDA-Public Use
  Company Number: US-ELI_LILLY_AND_COMPANY-US201106004764

PATIENT
  Sex: Male

DRUGS (3)
  1. CIALIS [Suspect]
     Dosage: UNK, UNKNOWN
  2. WELLBUTRIN [Concomitant]
  3. VIAGRA [Concomitant]

REACTIONS (3)
  - ACCIDENT [None]
  - BACK INJURY [None]
  - DRUG INEFFECTIVE [None]
